FAERS Safety Report 9627142 (Version 2)
Quarter: 2013Q4

REPORT INFORMATION
  Report Type: Report from Study
  Country: US (occurrence: US)
  Receive Date: 20131016
  Receipt Date: 20131016
  Transmission Date: 20140711
  Serious: Yes (Other)
  Sender: FDA-Public Use
  Company Number: US-US-EMD SERONO, INC.-7170405

PATIENT
  Age: 46 Year
  Sex: Male

DRUGS (2)
  1. REBIF [Suspect]
     Indication: MULTIPLE SCLEROSIS
     Route: 058
     Dates: start: 20100319
  2. LISINOPRIL [Suspect]
     Indication: HYPERTENSION

REACTIONS (4)
  - Angioedema [Recovering/Resolving]
  - Blood cholesterol abnormal [Unknown]
  - Hepatic enzyme increased [Recovered/Resolved]
  - Pain [Recovered/Resolved]
